FAERS Safety Report 14022343 (Version 1)
Quarter: 2017Q3

REPORT INFORMATION
  Report Type: Spontaneous
  Country: US (occurrence: US)
  Receive Date: 20170928
  Receipt Date: 20170928
  Transmission Date: 20171128
  Serious: Yes (Other)
  Sender: FDA-Public Use
  Company Number: US-ALLERGAN-1755340US

PATIENT
  Age: 28 Year
  Sex: Female

DRUGS (1)
  1. URSODEOXYCHOLIC ACID UNK [Suspect]
     Active Substance: URSODIOL
     Indication: CHOLESTASIS
     Route: 065

REACTIONS (3)
  - Pregnancy [Unknown]
  - Stillbirth [Unknown]
  - Off label use [Unknown]
